FAERS Safety Report 19880615 (Version 1)
Quarter: 2021Q3

REPORT INFORMATION
  Report Type: Spontaneous
  Country: GR (occurrence: GR)
  Receive Date: 20210924
  Receipt Date: 20210924
  Transmission Date: 20211014
  Serious: Yes (Other)
  Sender: FDA-Public Use
  Company Number: GR-MYLANLABS-2021M1064783

PATIENT
  Age: 48 Year
  Sex: Male

DRUGS (3)
  1. GEMCITABINE. [Suspect]
     Active Substance: GEMCITABINE
     Indication: HODGKIN^S DISEASE
     Dosage: UNK
     Route: 065
  2. RITUXIMAB. [Suspect]
     Active Substance: RITUXIMAB
     Indication: HODGKIN^S DISEASE
     Dosage: UNK
     Route: 065
  3. VINORELBINE [Suspect]
     Active Substance: VINORELBINE TARTRATE
     Indication: HODGKIN^S DISEASE
     Dosage: UNK
     Route: 065

REACTIONS (2)
  - Hodgkin^s disease [Unknown]
  - Product use in unapproved indication [Unknown]
